FAERS Safety Report 9557797 (Version 1)
Quarter: 2013Q3

REPORT INFORMATION
  Report Type: Spontaneous
  Country: US (occurrence: None)
  Receive Date: 20130726
  Receipt Date: 20130726
  Transmission Date: 20140515
  Serious: Yes (Hospitalization)
  Sender: FDA-Public Use
  Company Number: UTC-027971

PATIENT
  Age: 58 Year
  Sex: Female
  Weight: 81.82 kg

DRUGS (3)
  1. REMODULIN [Suspect]
     Indication: COR PULMONALE CHRONIC
     Dosage: (0.5 UG/KG, 1 IN 1 MIN)
     Dates: start: 20120803
  2. REMODULIN [Suspect]
     Indication: PULMONARY ARTERIAL HYPERTENSION
     Dosage: (0.5 UG/KG, 1 IN 1 MIN)
     Dates: start: 20120803
  3. REVATIO (SILDENAFIL CITRATE) [Concomitant]

REACTIONS (5)
  - Renal failure acute [None]
  - Adrenal insufficiency [None]
  - Hypotension [None]
  - Infection [None]
  - Pulmonary hypertension [None]
